FAERS Safety Report 16803091 (Version 1)
Quarter: 2019Q3

REPORT INFORMATION
  Report Type: Spontaneous
  Country: US (occurrence: US)
  Receive Date: 20190913
  Receipt Date: 20190913
  Transmission Date: 20191005
  Serious: Yes (Other)
  Sender: FDA-Public Use
  Company Number: US-ASTRAZENECA-2019SF27293

PATIENT
  Age: 914 Month
  Sex: Male
  Weight: 103.9 kg

DRUGS (11)
  1. HYDRODIURIL [Suspect]
     Active Substance: HYDROCHLOROTHIAZIDE
     Route: 048
  2. PROVENTIL [Concomitant]
     Active Substance: ALBUTEROL
  3. PRINIVIL [Suspect]
     Active Substance: LISINOPRIL
     Route: 048
  4. ALBUTEROL HFA [Concomitant]
     Active Substance: ALBUTEROL SULFATE
     Dosage: 108 (90 BASE) MCG/ACT
  5. FASENRA [Suspect]
     Active Substance: BENRALIZUMAB
     Indication: ASTHMA
     Dosage: 30.0MG/ML AS REQUIRED
     Route: 058
     Dates: start: 20190117
  6. PULMICORT RESPULES [Suspect]
     Active Substance: BUDESONIDE
     Dosage: 0.5 MG/ 2 ML, USE ONE VIAL IN NEBULIZER EVERY TWELVE HOURS
     Route: 055
  7. SINGULAIR [Concomitant]
     Active Substance: MONTELUKAST SODIUM
     Route: 048
  8. PERFOROMIST [Concomitant]
     Active Substance: FORMOTEROL FUMARATE DIHYDRATE
     Dosage: 20 MCG/2 ML, 1 VIAL BY NEBULIZER TWICE DAILY
  9. ATROVENT [Concomitant]
     Active Substance: IPRATROPIUM BROMIDE
     Indication: WHEEZING
     Dosage: 1 VIAL BY NEBULIZER EVERY 4 HOURS AS NEEDED
  10. ATROVENT [Concomitant]
     Active Substance: IPRATROPIUM BROMIDE
     Indication: DYSPNOEA
     Dosage: 1 VIAL BY NEBULIZER EVERY 4 HOURS AS NEEDED
  11. OXYGEN. [Concomitant]
     Active Substance: OXYGEN
     Dosage: 2.5 LPM AT NIGHT WITH CPAP

REACTIONS (3)
  - Asthenia [Not Recovered/Not Resolved]
  - Myalgia [Not Recovered/Not Resolved]
  - Arthralgia [Not Recovered/Not Resolved]

NARRATIVE: CASE EVENT DATE: 201902
